FAERS Safety Report 25208286 (Version 1)
Quarter: 2025Q2

REPORT INFORMATION
  Report Type: Spontaneous
  Country: US (occurrence: US)
  Receive Date: 20250417
  Receipt Date: 20250417
  Transmission Date: 20250716
  Serious: Yes (Hospitalization, Other)
  Sender: BRISTOL MYERS SQUIBB
  Company Number: US-BRISTOL-MYERS SQUIBB COMPANY-2025-051723

PATIENT
  Age: 58 Year
  Sex: Female
  Weight: 73.94 kg

DRUGS (4)
  1. ERIBULIN [Suspect]
     Active Substance: ERIBULIN
     Indication: Breast cancer metastatic
     Dates: start: 20250305
  2. TRASTUZUMAB [Suspect]
     Active Substance: TRASTUZUMAB
     Indication: Breast cancer metastatic
     Dates: start: 20250305
  3. APIXABAN [Interacting]
     Active Substance: APIXABAN
     Indication: Deep vein thrombosis
  4. TUCATINIB [Interacting]
     Active Substance: TUCATINIB
     Indication: Breast cancer metastatic
     Route: 048
     Dates: start: 20250305

REACTIONS (9)
  - Mucosal inflammation [Recovered/Resolved]
  - Drug interaction [Unknown]
  - Staphylococcal bacteraemia [Unknown]
  - Diarrhoea [Recovering/Resolving]
  - Anaemia [Recovered/Resolved]
  - Pneumonia staphylococcal [Unknown]
  - Blood bilirubin increased [Unknown]
  - Dysphagia [Recovering/Resolving]
  - Oral herpes [Unknown]

NARRATIVE: CASE EVENT DATE: 20250311
